FAERS Safety Report 9131081 (Version 2)
Quarter: 2013Q2

REPORT INFORMATION
  Report Type: Spontaneous
  Country: US (occurrence: US)
  Receive Date: 20130301
  Receipt Date: 20130403
  Transmission Date: 20140414
  Serious: Yes (Hospitalization)
  Sender: FDA-Public Use
  Company Number: US-BRISTOL-MYERS SQUIBB COMPANY-17408428

PATIENT
  Age: 67 Year
  Sex: Male
  Weight: 83.44 kg

DRUGS (2)
  1. ERBITUX [Suspect]
     Indication: TONGUE NEOPLASM MALIGNANT STAGE UNSPECIFIED
     Dosage: THERAPY DATES:30JAN2013,6FEB2013,30JAN13
     Dates: start: 20130123
  2. BENADRYL [Concomitant]
     Indication: PREMEDICATION
     Route: 042
     Dates: start: 20130130, end: 20130206

REACTIONS (4)
  - Lymphoedema [Unknown]
  - Rash [Unknown]
  - Blood albumin decreased [None]
  - Blood sodium decreased [None]
